FAERS Safety Report 15694300 (Version 1)
Quarter: 2018Q4

REPORT INFORMATION
  Report Type: Other
  Country: ES (occurrence: ES)
  Receive Date: 20181206
  Receipt Date: 20181206
  Transmission Date: 20190205
  Serious: Yes (Hospitalization, Other)
  Sender: FDA-Public Use
  Company Number: ES-APOTEX-2018AP026031

PATIENT
  Age: 36 Year
  Sex: Male

DRUGS (4)
  1. CLOFAZIMINA [Suspect]
     Active Substance: CLOFAZIMINE
     Indication: TUBERCULOSIS
     Dosage: DEL 24 AL 28. REINICIA EL 14/12
     Route: 065
     Dates: start: 20171124, end: 20171128
  2. MEROPENEM. [Suspect]
     Active Substance: MEROPENEM
     Indication: TUBERCULOSIS
     Dosage: DEL 24 AL 28. REINTRODUCEN EL 4/12 Y SUSPENDEN POR AUMENTO DE TRANSAMINASAS
     Route: 065
     Dates: start: 20171124, end: 20171128
  3. LINEZOLID. [Suspect]
     Active Substance: LINEZOLID
     Indication: TUBERCULOSIS
     Dosage: DEL 24 AL 28. REINTRODUCEN EL 11/12
     Route: 065
     Dates: start: 20171124, end: 20171128
  4. AMOXICILLIN, CLAVULANATE [Suspect]
     Active Substance: AMOXICILLIN\CLAVULANATE POTASSIUM
     Indication: TUBERCULOSIS
     Dosage: DEL 24 AL 28. REINTRODUCEN EL 4/12 Y SUSPENDEN POR AUMENTO DE TRANSAMINASAS
     Route: 065
     Dates: start: 20171124, end: 20171128

REACTIONS (1)
  - Hepatitis cholestatic [Recovered/Resolved]

NARRATIVE: CASE EVENT DATE: 20171128
